FAERS Safety Report 24546855 (Version 1)
Quarter: 2024Q4

REPORT INFORMATION
  Report Type: Spontaneous
  Country: GB (occurrence: GB)
  Receive Date: 20241024
  Receipt Date: 20241024
  Transmission Date: 20250115
  Serious: Yes (Other)
  Sender: UCB
  Company Number: None

PATIENT
  Sex: Female

DRUGS (1)
  1. BIMZELX [Suspect]
     Active Substance: BIMEKIZUMAB-BKZX
     Indication: Product used for unknown indication
     Dosage: UNK

REACTIONS (8)
  - Palmoplantar pustulosis [Recovering/Resolving]
  - Muscle spasms [Recovering/Resolving]
  - Oral candidiasis [Recovered/Resolved]
  - Skin infection [Recovering/Resolving]
  - Folliculitis [Recovering/Resolving]
  - Blepharitis [Recovering/Resolving]
  - Chillblains [Recovering/Resolving]
  - Acne [Recovering/Resolving]
